FAERS Safety Report 7767391-5 (Version None)
Quarter: 2011Q3

REPORT INFORMATION
  Report Type: 
  Country: None (occurrence: None)
  Receive Date: 20110922
  Receipt Date: 20100811
  Transmission Date: 20111222
  Serious: No
  Sender: FDA-Public Use
  Company Number: US-ASTRAZENECA-2009SE17574

PATIENT
  Age: 30 Year
  Sex: Female
  Weight: 129.3 kg

DRUGS (10)
  1. AMITRIPTYLINE HCL [Concomitant]
     Indication: PAIN
     Dates: start: 20070101
  2. SEROQUEL [Suspect]
     Route: 048
     Dates: start: 20070101, end: 20070901
  3. CELEXA [Concomitant]
     Dates: start: 20060101
  4. METHADONE HCL [Concomitant]
     Indication: PAIN
     Route: 048
     Dates: start: 20070101
  5. SEROQUEL [Suspect]
     Route: 048
     Dates: start: 20060301, end: 20070601
  6. NAPROXEN [Concomitant]
     Indication: PAIN
     Route: 048
     Dates: start: 20070101
  7. SEROQUEL [Suspect]
     Indication: POST-TRAUMATIC STRESS DISORDER
     Route: 048
     Dates: start: 20060301, end: 20070101
  8. CYMBALTA [Concomitant]
     Indication: PAIN
     Dates: start: 20070101
  9. PERCOCET [Concomitant]
     Indication: PAIN
     Dosage: 7.5/325, 325 MG-7.5 MG 1 TABLET BY MOUTH EVERY 6 HOURS
     Route: 048
     Dates: start: 20070101
  10. LORAZEPAM [Concomitant]
     Route: 048
     Dates: start: 20070101

REACTIONS (3)
  - TYPE 2 DIABETES MELLITUS [None]
  - OBESITY [None]
  - GESTATIONAL DIABETES [None]
